FAERS Safety Report 13531849 (Version 1)
Quarter: 2017Q2

REPORT INFORMATION
  Report Type: Spontaneous
  Country: US (occurrence: US)
  Receive Date: 20170510
  Receipt Date: 20170510
  Transmission Date: 20170830
  Serious: Yes (Hospitalization)
  Sender: FDA-Public Use
  Company Number: US-SA-2017SA034850

PATIENT
  Age: 72 Year
  Sex: Female

DRUGS (5)
  1. LUMIZYME [Suspect]
     Active Substance: ALGLUCOSIDASE ALFA
     Indication: GLYCOGEN STORAGE DISEASE TYPE II
     Dosage: 10 PACK C5394C01 AND EXPIRY - UTR AND 4 SINGLE C5426C02 WITH EXPIRY UTR
     Route: 042
     Dates: start: 20170125, end: 20170125
  2. LUMIZYME [Suspect]
     Active Substance: ALGLUCOSIDASE ALFA
     Indication: GLYCOGEN STORAGE DISEASE TYPE II
     Route: 042
     Dates: start: 20120718, end: 2017
  3. LUMIZYME [Suspect]
     Active Substance: ALGLUCOSIDASE ALFA
     Indication: GLYCOGEN STORAGE DISEASE TYPE II
     Route: 042
     Dates: start: 2017, end: 20170405
  4. LUMIZYME [Suspect]
     Active Substance: ALGLUCOSIDASE ALFA
     Indication: GLYCOGEN STORAGE DISEASE TYPE II
     Dosage: 10 PACK C5394C01 AND EXPIRY - UTR AND 4 SINGLE C5426C02 WITH EXPIRY UTR
     Route: 042
     Dates: start: 20170125, end: 20170125
  5. LUMIZYME [Suspect]
     Active Substance: ALGLUCOSIDASE ALFA
     Indication: GLYCOGEN STORAGE DISEASE TYPE II
     Route: 042
     Dates: start: 2017, end: 20170405

REACTIONS (2)
  - Hospitalisation [Recovered/Resolved]
  - Malaise [Unknown]
